APPROVED DRUG PRODUCT: NADOLOL AND BENDROFLUMETHIAZIDE
Active Ingredient: BENDROFLUMETHIAZIDE; NADOLOL
Strength: 5MG;40MG
Dosage Form/Route: TABLET;ORAL
Application: A077833 | Product #001
Applicant: IMPAX LABORATORIES INC
Approved: Mar 30, 2007 | RLD: No | RS: No | Type: DISCN